FAERS Safety Report 24631856 (Version 1)
Quarter: 2024Q4

REPORT INFORMATION
  Report Type: Spontaneous
  Country: US (occurrence: US)
  Receive Date: 20241118
  Receipt Date: 20241118
  Transmission Date: 20250115
  Serious: No
  Sender: ALKERMES
  Company Number: US-ALKERMES INC.-ALK-2024-002871

PATIENT
  Sex: Male

DRUGS (4)
  1. ARISTADA INITIO [Suspect]
     Active Substance: ARIPIPRAZOLE LAUROXIL
     Indication: Bipolar disorder
     Dosage: 675 MILLIGRAM, ONCE
     Route: 030
     Dates: start: 20241009
  2. TRAZODONE [Concomitant]
     Active Substance: TRAZODONE HYDROCHLORIDE
     Indication: Product used for unknown indication
     Dosage: 50 MILLIGRAM NIGHTLY AS NEEDED
     Route: 065
  3. DEPAKOTE [Concomitant]
     Active Substance: DIVALPROEX SODIUM
     Indication: Product used for unknown indication
     Dosage: 500 MILLIGRAM, BID
     Route: 065
  4. PRAZOSIN [Concomitant]
     Active Substance: PRAZOSIN\PRAZOSIN HYDROCHLORIDE
     Indication: Product used for unknown indication
     Dosage: 1 MILLIGRAM AT NIGHT
     Route: 065

REACTIONS (2)
  - Product administration error [Unknown]
  - Off label use [Unknown]

NARRATIVE: CASE EVENT DATE: 20240101
